FAERS Safety Report 5862826-7 (Version None)
Quarter: 2008Q3

REPORT INFORMATION
  Report Type: 
  Country: None (occurrence: None)
  Receive Date: 20080828
  Receipt Date: 20080827
  Transmission Date: 20090109
  Serious: Yes (Other)
  Sender: FDA-Public Use
  Company Number: A0744684A

PATIENT
  Age: 49 Year
  Sex: Male

DRUGS (5)
  1. ALLI [Suspect]
     Route: 048
     Dates: start: 20080717, end: 20080823
  2. SOTALOL HCL [Concomitant]
  3. DIOVAN [Concomitant]
  4. LIPITOR [Concomitant]
  5. MULTI-VITAMIN [Concomitant]

REACTIONS (4)
  - ATRIAL FIBRILLATION [None]
  - COAGULOPATHY [None]
  - DRUG INTERACTION [None]
  - INTERNATIONAL NORMALISED RATIO INCREASED [None]
